FAERS Safety Report 19160638 (Version 2)
Quarter: 2021Q2

REPORT INFORMATION
  Report Type: Spontaneous
  Country: ZA (occurrence: ZA)
  Receive Date: 20210420
  Receipt Date: 20210503
  Transmission Date: 20210717
  Serious: Yes (Other)
  Sender: FDA-Public Use
  Company Number: ZA-US-PROVELL PHARMACEUTICALS LLC-9200276

PATIENT
  Age: 75 Year
  Sex: Female

DRUGS (2)
  1. LITHIUM. [Concomitant]
     Active Substance: LITHIUM
     Indication: PRODUCT USED FOR UNKNOWN INDICATION
  2. EUTHYROX [Suspect]
     Active Substance: LEVOTHYROXINE SODIUM
     Indication: HYPOTHYROIDISM
     Route: 048
     Dates: start: 20180401, end: 20210413

REACTIONS (7)
  - Dry skin [Unknown]
  - Solar lentigo [Unknown]
  - Skin wrinkling [Unknown]
  - Renal failure [Unknown]
  - Madarosis [Unknown]
  - Constipation [Unknown]
  - Alopecia [Recovering/Resolving]
